FAERS Safety Report 16281185 (Version 1)
Quarter: 2019Q2

REPORT INFORMATION
  Report Type: Spontaneous
  Country: TW (occurrence: TW)
  Receive Date: 20190507
  Receipt Date: 20190507
  Transmission Date: 20190711
  Serious: Yes (Other)
  Sender: FDA-Public Use
  Company Number: TW-STRIDES ARCOLAB LIMITED-2019SP003784

PATIENT
  Age: 51 Year
  Sex: Female

DRUGS (6)
  1. PREDNISOLONE. [Suspect]
     Active Substance: PREDNISOLONE
     Indication: RENAL TRANSPLANT
     Dosage: 5 MG PER DAY
     Route: 065
  2. MYCOPHENOLATE MOFETIL. [Suspect]
     Active Substance: MYCOPHENOLATE MOFETIL
     Indication: RENAL TRANSPLANT
     Dosage: 250 MG, BID
     Route: 065
  3. COLCHICINE. [Concomitant]
     Active Substance: COLCHICINE
     Indication: GOUT
     Dosage: 0.5 MG, QOD
     Route: 065
  4. CICLOSPORIN [Suspect]
     Active Substance: CYCLOSPORINE
     Indication: RENAL TRANSPLANT
     Dosage: 50 MG, BID
     Route: 065
  5. ATENOLOL. [Concomitant]
     Active Substance: ATENOLOL
     Indication: HYPERTENSION
     Dosage: 100 MG PER DAY
     Route: 065
  6. BENZBROMARONE [Concomitant]
     Active Substance: BENZBROMARONE
     Indication: GOUT
     Dosage: 50 MG, QOD
     Route: 065

REACTIONS (13)
  - Tooth disorder [Recovered/Resolved]
  - Mastication disorder [Recovered/Resolved]
  - Periodontal inflammation [Recovered/Resolved]
  - Diastema [Recovered/Resolved]
  - Bone loss [Recovered/Resolved]
  - Loose tooth [Recovered/Resolved]
  - Gingivitis [Recovered/Resolved]
  - Dental fistula [Recovered/Resolved]
  - Periodontitis [Recovered/Resolved]
  - Gingival hypertrophy [Recovered/Resolved]
  - Gingival bleeding [Recovered/Resolved]
  - Dental plaque [Recovered/Resolved]
  - Tooth deposit [Recovered/Resolved]
